FAERS Safety Report 7599400-0 (Version None)
Quarter: 2011Q3

REPORT INFORMATION
  Report Type: 
  Country: None (occurrence: None)
  Receive Date: 20110711
  Receipt Date: 20110531
  Transmission Date: 20111222
  Serious: Yes (Other)
  Sender: FDA-Public Use
  Company Number: BR-BAYER-201018918LA

PATIENT
  Age: 27 Year
  Sex: Female
  Weight: 120 kg

DRUGS (1)
  1. YAZ [Suspect]
     Indication: MENSTRUATION IRREGULAR
     Route: 048
     Dates: start: 20080101, end: 20100901

REACTIONS (8)
  - FEELING HOT [None]
  - BLOOD PRESSURE DECREASED [None]
  - MENSTRUAL DISORDER [None]
  - ABDOMINAL PAIN [None]
  - FORMICATION [None]
  - VOMITING [None]
  - TREMOR [None]
  - DIZZINESS [None]
